FAERS Safety Report 6785112-X (Version None)
Quarter: 2010Q2

REPORT INFORMATION
  Report Type: 
  Country: None (occurrence: None)
  Receive Date: 20100622
  Receipt Date: 20100616
  Transmission Date: 20101027
  Serious: Yes (Other)
  Sender: FDA-Public Use
  Company Number: JP-MERCK-1006USA02830

PATIENT
  Sex: Male

DRUGS (1)
  1. PROPECIA [Suspect]
     Dosage: DAILY DOSE UNKNOWN
     Route: 048

REACTIONS (1)
  - VENTRICULAR FIBRILLATION [None]
